FAERS Safety Report 14174390 (Version 1)
Quarter: 2017Q4

REPORT INFORMATION
  Report Type: Spontaneous
  Country: US (occurrence: US)
  Receive Date: 20171109
  Receipt Date: 20171109
  Transmission Date: 20180321
  Serious: Yes (Other)
  Sender: FDA-Public Use
  Company Number: US-ABBVIE-17P-163-2154810-00

PATIENT
  Age: 18 Year
  Sex: Female

DRUGS (1)
  1. MIVACRON [Suspect]
     Active Substance: MIVACURIUM CHLORIDE
     Indication: PRODUCT USED FOR UNKNOWN INDICATION
     Route: 050
     Dates: start: 1999, end: 1999

REACTIONS (1)
  - Drug effect prolonged [Recovered/Resolved]

NARRATIVE: CASE EVENT DATE: 1999
